FAERS Safety Report 8059608-7 (Version None)
Quarter: 2012Q1

REPORT INFORMATION
  Report Type: 
  Country: None (occurrence: None)
  Receive Date: 20120120
  Receipt Date: 20120112
  Transmission Date: 20120608
  Serious: Yes (Hospitalization)
  Sender: FDA-Public Use
  Company Number: PHEH2011US011275

PATIENT
  Sex: Female
  Weight: 72.7 kg

DRUGS (4)
  1. LEVOTHYROXINE SODIUM [Concomitant]
     Dosage: 75 UG, DAILY
     Route: 048
  2. OMEPRAZOLE [Concomitant]
     Dosage: 40 MG, DAILY
     Route: 048
  3. TEKTURNA HCT [Suspect]
     Indication: HYPERTENSION
     Dosage: 1 DF, QD (300 MG/12.5 MG)
     Route: 048
     Dates: start: 20111121, end: 20111125
  4. PAXIL [Concomitant]
     Dosage: 20 MG, DAILY
     Route: 048

REACTIONS (6)
  - POLYURIA [None]
  - POLYDIPSIA [None]
  - DIABETES MELLITUS INADEQUATE CONTROL [None]
  - GLYCOSURIA [None]
  - GLYCOSYLATED HAEMOGLOBIN INCREASED [None]
  - WEIGHT DECREASED [None]
